FAERS Safety Report 19641725 (Version 1)
Quarter: 2021Q3

REPORT INFORMATION
  Report Type: Spontaneous
  Country: GB (occurrence: GB)
  Receive Date: 20210731
  Receipt Date: 20210731
  Transmission Date: 20211014
  Serious: Yes (Other)
  Sender: FDA-Public Use
  Company Number: GB-AUROBINDO-AUR-APL-2021-032416

PATIENT
  Age: 61 Year
  Sex: Female

DRUGS (1)
  1. LAMOTRIGINE. [Suspect]
     Active Substance: LAMOTRIGINE
     Indication: TYPICAL AURA WITHOUT HEADACHE
     Dosage: STARTING AT 25MG ONCE DAILY AND THEN INCREASING BY 25MG EVERY TWO WEEKS UP TO 50MG TWICE DAILY
     Route: 048
     Dates: start: 20210518, end: 20210618

REACTIONS (2)
  - Lymphadenopathy [Recovered/Resolved]
  - Rash [Recovered/Resolved]

NARRATIVE: CASE EVENT DATE: 20210614
